FAERS Safety Report 5815391-4 (Version None)
Quarter: 2008Q3

REPORT INFORMATION
  Report Type: 
  Country: None (occurrence: None)
  Receive Date: 20080718
  Receipt Date: 20080707
  Transmission Date: 20090109
  Serious: Yes (Other)
  Sender: FDA-Public Use
  Company Number: US-PFIZER INC-2008056307

PATIENT
  Sex: Female

DRUGS (2)
  1. GEODON [Suspect]
     Indication: BIPOLAR DISORDER
  2. CYMBALTA [Suspect]

REACTIONS (8)
  - ANOREXIA [None]
  - DISORIENTATION [None]
  - DRY MOUTH [None]
  - DYSPHAGIA [None]
  - LIP DRY [None]
  - MENTAL IMPAIRMENT [None]
  - NAUSEA [None]
  - WEIGHT DECREASED [None]
